FAERS Safety Report 5365331-X (Version None)
Quarter: 2007Q2

REPORT INFORMATION
  Report Type: 
  Country: None (occurrence: None)
  Receive Date: 20070530
  Receipt Date: 20070227
  Transmission Date: 20071010
  Serious: No
  Sender: FDA-Public Use
  Company Number: 2005PV005345

PATIENT
  Age: 50 Year
  Sex: Female
  Weight: 124.7392 kg

DRUGS (9)
  1. BYETTA [Suspect]
     Indication: DIABETES MELLITUS NON-INSULIN-DEPENDENT
     Dosage: SEE IMAGE
     Route: 058
     Dates: start: 20050701, end: 20050801
  2. BYETTA [Suspect]
     Indication: DIABETES MELLITUS NON-INSULIN-DEPENDENT
     Dosage: SEE IMAGE
     Route: 058
     Dates: start: 20050801
  3. CALCIUM WITH VITAMIN D [Suspect]
     Dosage: 1 DF; HS; PO
     Route: 048
     Dates: start: 20070201
  4. ALBUTEROL/PRATROPIUM MIX [Concomitant]
  5. FORADIL [Concomitant]
  6. SINGULAIR [Concomitant]
  7. PULMICORT [Concomitant]
  8. NEXIUM [Concomitant]
  9. MULTIVIT [Concomitant]

REACTIONS (11)
  - ABDOMINAL DISTENSION [None]
  - ABDOMINAL PAIN UPPER [None]
  - DECREASED APPETITE [None]
  - DYSGEUSIA [None]
  - DYSPNOEA [None]
  - ERUCTATION [None]
  - FLATULENCE [None]
  - LUNG INFECTION [None]
  - MALAISE [None]
  - STOMACH DISCOMFORT [None]
  - WEIGHT DECREASED [None]
